FAERS Safety Report 12898421 (Version 1)
Quarter: 2016Q4

REPORT INFORMATION
  Report Type: Spontaneous
  Country: FR (occurrence: FR)
  Receive Date: 20161031
  Receipt Date: 20161031
  Transmission Date: 20170207
  Serious: Yes (Hospitalization, Other)
  Sender: FDA-Public Use
  Company Number: FR-ELI_LILLY_AND_COMPANY-FR201610007710

PATIENT
  Age: 62 Year
  Sex: Male

DRUGS (3)
  1. TRANXENE T-TAB [Suspect]
     Active Substance: CLORAZEPATE DIPOTASSIUM
     Dosage: 5 MG / 6H
     Route: 042
     Dates: start: 20160930
  2. TRANXENE T-TAB [Suspect]
     Active Substance: CLORAZEPATE DIPOTASSIUM
     Indication: MAJOR DEPRESSION
     Dosage: 10 MG / 6H
     Route: 042
  3. CYMBALTA [Suspect]
     Active Substance: DULOXETINE HYDROCHLORIDE
     Indication: DEPRESSION
     Dosage: UNK, UNKNOWN
     Route: 065
     Dates: end: 20160919

REACTIONS (7)
  - Blood creatinine decreased [Unknown]
  - Hypothermia [Recovered/Resolved]
  - Electrocardiogram QT prolonged [Recovering/Resolving]
  - Leukaemia recurrent [Unknown]
  - Graft versus host disease in gastrointestinal tract [Unknown]
  - Immunosuppression [Unknown]
  - Thyroid hormones decreased [Unknown]

NARRATIVE: CASE EVENT DATE: 20160928
